FAERS Safety Report 5841799-7 (Version None)
Quarter: 2008Q3

REPORT INFORMATION
  Report Type: 
  Country: None (occurrence: None)
  Receive Date: 20080812
  Receipt Date: 20080805
  Transmission Date: 20090109
  Serious: Yes (Other)
  Sender: FDA-Public Use
  Company Number: A0741141A

PATIENT
  Sex: Female

DRUGS (2)
  1. PARNATE [Suspect]
     Indication: DEPRESSION
     Route: 048
     Dates: start: 19980101
  2. UNKNOWN [Concomitant]

REACTIONS (2)
  - PARKINSONISM [None]
  - SOMNOLENCE [None]
